FAERS Safety Report 12791288 (Version 1)
Quarter: 2016Q3

REPORT INFORMATION
  Report Type: Spontaneous
  Country: US (occurrence: US)
  Receive Date: 20160929
  Receipt Date: 20160929
  Transmission Date: 20161109
  Serious: Yes (Hospitalization)
  Sender: FDA-Public Use
  Company Number: US-CELGENEUS-USA-2016094912

PATIENT
  Age: 9 Year
  Sex: Male
  Weight: 32 kg

DRUGS (3)
  1. VIDAZA [Suspect]
     Active Substance: AZACITIDINE
     Indication: ACUTE MYELOID LEUKAEMIA
     Route: 065
  2. FLUDARABINE [Suspect]
     Active Substance: FLUDARABINE PHOSPHATE
     Indication: ACUTE MYELOID LEUKAEMIA
     Route: 065
  3. CYTARABINE. [Suspect]
     Active Substance: CYTARABINE
     Indication: ACUTE MYELOID LEUKAEMIA
     Route: 065

REACTIONS (10)
  - Gingival swelling [Unknown]
  - Cellulitis [Unknown]
  - Febrile neutropenia [Unknown]
  - Gingivitis [Unknown]
  - Sinusitis [Unknown]
  - Neutropenia [Unknown]
  - Pyrexia [Recovered/Resolved]
  - Bacteraemia [Unknown]
  - Gingival ulceration [Unknown]
  - Tachycardia [Unknown]
